FAERS Safety Report 5381678-5 (Version None)
Quarter: 2007Q3

REPORT INFORMATION
  Report Type: 
  Country: None (occurrence: None)
  Receive Date: 20070705
  Receipt Date: 20070705
  Transmission Date: 20080115
  Serious: Yes (Other)
  Sender: FDA-Public Use
  Company Number: None

PATIENT
  Age: 30 Year
  Sex: Female
  Weight: 117.9352 kg

DRUGS (3)
  1. CELEBREX [Suspect]
     Indication: FIBROMYALGIA
     Dosage: 200 MG 2X DAY 2X DAILY PO
     Route: 048
     Dates: start: 20050101, end: 20070701
  2. CELEBREX [Suspect]
     Indication: OSTEOARTHRITIS
     Dosage: 200 MG 2X DAY 2X DAILY PO
     Route: 048
     Dates: start: 20050101, end: 20070701
  3. AMBIEN CR [Suspect]
     Indication: INSOMNIA
     Dosage: 12.5 DAILY PO
     Route: 048
     Dates: start: 20060101, end: 20070630

REACTIONS (1)
  - DOCUMENTED HYPERSENSITIVITY TO ADMINISTERED DRUG [None]
